FAERS Safety Report 10022268 (Version 1)
Quarter: 2014Q1

REPORT INFORMATION
  Report Type: Spontaneous
  Country: US (occurrence: US)
  Receive Date: 20140319
  Receipt Date: 20140319
  Transmission Date: 20141002
  Serious: No
  Sender: FDA-Public Use
  Company Number: US-ASTRAZENECA-2014SE01662

PATIENT
  Age: 72 Year
  Sex: Female
  Weight: 62.1 kg

DRUGS (3)
  1. METOPROLOL SUCCINATE [Suspect]
     Indication: SUPRAVENTRICULAR TACHYCARDIA
     Route: 048
     Dates: start: 20131209, end: 20140104
  2. METOPROLOL SUCCINATE [Suspect]
     Indication: SUPRAVENTRICULAR TACHYCARDIA
     Dosage: ONE HALF OF 25 MG DAILY
     Route: 048
     Dates: start: 20140105, end: 20140106
  3. TIROSENT [Concomitant]
     Indication: AUTOIMMUNE THYROIDITIS
     Dosage: 75 MCG. DAILY
     Dates: start: 1994

REACTIONS (5)
  - Oesophageal pain [Not Recovered/Not Resolved]
  - Eructation [Not Recovered/Not Resolved]
  - Abdominal pain upper [Not Recovered/Not Resolved]
  - Intentional drug misuse [Unknown]
  - Off label use [Unknown]
